FAERS Safety Report 4444077-6 (Version None)
Quarter: 2004Q3

REPORT INFORMATION
  Report Type: 
  Country: None (occurrence: None)
  Receive Date: 20040729
  Receipt Date: 20040205
  Transmission Date: 20050211
  Serious: Yes (Other)
  Sender: FDA-Public Use
  Company Number: US-JNJFOC-20030900220

PATIENT
  Age: 29 Year
  Sex: Female

DRUGS (4)
  1. RISPERDAL [Suspect]
     Indication: DEPRESSION
     Dosage: 1 MG, 3 IN 1 DAY; ORAL
     Route: 048
     Dates: start: 20030515
  2. LEXAPRO [Suspect]
     Indication: DEPRESSION
     Dosage: 10 MG, 1 IN 1 DAY,ORAL
     Route: 048
     Dates: start: 20030422, end: 20030515
  3. TRILEPTAL [Suspect]
     Indication: CONVULSION
     Dosage: 900 MG 1 IN 1 DAY; ORAL
     Route: 048
     Dates: start: 20030101
  4. OXCARBAZEPINE [Concomitant]

REACTIONS (1)
  - CONVULSION [None]
